FAERS Safety Report 26053335 (Version 1)
Quarter: 2025Q4

REPORT INFORMATION
  Report Type: Report from Study
  Country: US (occurrence: US)
  Receive Date: 20251117
  Receipt Date: 20251117
  Transmission Date: 20260118
  Serious: Yes (Other)
  Sender: MYLAN
  Company Number: US-MYLANLABS-2025M1097070

PATIENT
  Age: 59 Year
  Sex: Female

DRUGS (24)
  1. DILTIAZEM [Suspect]
     Active Substance: DILTIAZEM
     Indication: Product used for unknown indication
     Dosage: UNK
  2. DILTIAZEM [Suspect]
     Active Substance: DILTIAZEM
     Dosage: UNK
     Route: 065
  3. DILTIAZEM [Suspect]
     Active Substance: DILTIAZEM
     Dosage: UNK
     Route: 065
  4. DILTIAZEM [Suspect]
     Active Substance: DILTIAZEM
     Dosage: UNK
  5. YUTREPIA [Suspect]
     Active Substance: TREPROSTINIL SODIUM
     Indication: Pulmonary arterial hypertension
     Dosage: 79.5 MICROGRAM, QID (INHALE 2 BREATHS PER CAPSULE FOUR TIMES A DAY)
     Route: 055
     Dates: start: 202506
  6. YUTREPIA [Suspect]
     Active Substance: TREPROSTINIL SODIUM
     Dosage: 79.5 MICROGRAM, QID (INHALE 2 BREATHS PER CAPSULE FOUR TIMES A DAY)
     Dates: start: 202506
  7. YUTREPIA [Suspect]
     Active Substance: TREPROSTINIL SODIUM
     Dosage: 79.5 MICROGRAM, QID (INHALE 2 BREATHS PER CAPSULE FOUR TIMES A DAY)
     Dates: start: 202506
  8. YUTREPIA [Suspect]
     Active Substance: TREPROSTINIL SODIUM
     Dosage: 79.5 MICROGRAM, QID (INHALE 2 BREATHS PER CAPSULE FOUR TIMES A DAY)
     Route: 055
     Dates: start: 202506
  9. YUTREPIA [Suspect]
     Active Substance: TREPROSTINIL SODIUM
     Dosage: 106 MICROGRAM, QID (INHALE 2 BREATHS PER CAPSULE FOUR TIMES A DAY)
     Route: 055
     Dates: start: 202506
  10. YUTREPIA [Suspect]
     Active Substance: TREPROSTINIL SODIUM
     Dosage: 106 MICROGRAM, QID (INHALE 2 BREATHS PER CAPSULE FOUR TIMES A DAY)
     Dates: start: 202506
  11. YUTREPIA [Suspect]
     Active Substance: TREPROSTINIL SODIUM
     Dosage: 106 MICROGRAM, QID (INHALE 2 BREATHS PER CAPSULE FOUR TIMES A DAY)
     Dates: start: 202506
  12. YUTREPIA [Suspect]
     Active Substance: TREPROSTINIL SODIUM
     Dosage: 106 MICROGRAM, QID (INHALE 2 BREATHS PER CAPSULE FOUR TIMES A DAY)
     Route: 055
     Dates: start: 202506
  13. YUTREPIA [Suspect]
     Active Substance: TREPROSTINIL SODIUM
     Indication: Pulmonary arterial hypertension
     Dosage: 132.5 MICROGRAM, QID (INHALE 2 BREATHS OF 53MCG AND 79.5 MCG PER CAPSULE 4 TIMES A DAY)
     Dates: start: 202506
  14. YUTREPIA [Suspect]
     Active Substance: TREPROSTINIL SODIUM
     Dosage: 132.5 MICROGRAM, QID (INHALE 2 BREATHS OF 53MCG AND 79.5 MCG PER CAPSULE 4 TIMES A DAY)
     Route: 055
     Dates: start: 202506
  15. YUTREPIA [Suspect]
     Active Substance: TREPROSTINIL SODIUM
     Dosage: 132.5 MICROGRAM, QID (INHALE 2 BREATHS OF 53MCG AND 79.5 MCG PER CAPSULE 4 TIMES A DAY)
     Route: 055
     Dates: start: 202506
  16. YUTREPIA [Suspect]
     Active Substance: TREPROSTINIL SODIUM
     Dosage: 132.5 MICROGRAM, QID (INHALE 2 BREATHS OF 53MCG AND 79.5 MCG PER CAPSULE 4 TIMES A DAY)
     Dates: start: 202506
  17. YUTREPIA [Suspect]
     Active Substance: TREPROSTINIL SODIUM
     Indication: Pulmonary arterial hypertension
     Dosage: 212 MICROGRAM, QID (INHALE 2 BREATHS PER CAPSULE FOUR TIMES A DAY)
     Dates: start: 202506
  18. YUTREPIA [Suspect]
     Active Substance: TREPROSTINIL SODIUM
     Dosage: 212 MICROGRAM, QID (INHALE 2 BREATHS PER CAPSULE FOUR TIMES A DAY)
     Route: 055
     Dates: start: 202506
  19. YUTREPIA [Suspect]
     Active Substance: TREPROSTINIL SODIUM
     Dosage: 212 MICROGRAM, QID (INHALE 2 BREATHS PER CAPSULE FOUR TIMES A DAY)
     Route: 055
     Dates: start: 202506
  20. YUTREPIA [Suspect]
     Active Substance: TREPROSTINIL SODIUM
     Dosage: 212 MICROGRAM, QID (INHALE 2 BREATHS PER CAPSULE FOUR TIMES A DAY)
     Dates: start: 202506
  21. LOSARTAN [Suspect]
     Active Substance: LOSARTAN
     Indication: Product used for unknown indication
     Dosage: UNK
  22. LOSARTAN [Suspect]
     Active Substance: LOSARTAN
     Dosage: UNK
     Route: 065
  23. LOSARTAN [Suspect]
     Active Substance: LOSARTAN
     Dosage: UNK
     Route: 065
  24. LOSARTAN [Suspect]
     Active Substance: LOSARTAN
     Dosage: UNK

REACTIONS (8)
  - Oxygen consumption increased [Unknown]
  - Fatigue [Unknown]
  - Chest pain [Unknown]
  - Diarrhoea [Unknown]
  - Flushing [Unknown]
  - Dizziness [Unknown]
  - Hypotension [Recovered/Resolved]
  - Cough [Unknown]

NARRATIVE: CASE EVENT DATE: 20250101
